FAERS Safety Report 19264974 (Version 2)
Quarter: 2021Q2

REPORT INFORMATION
  Report Type: Report from Study
  Country: None (occurrence: US)
  Receive Date: 20210517
  Receipt Date: 20210522
  Transmission Date: 20210717
  Serious: Yes (Other)
  Sender: FDA-Public Use
  Company Number: US-ABBVIE-21K-163-3903430-00

PATIENT
  Sex: Female
  Weight: 76.27 kg

DRUGS (2)
  1. HUMIRA [Suspect]
     Active Substance: ADALIMUMAB
     Route: 058
     Dates: start: 202103
  2. HUMIRA [Suspect]
     Active Substance: ADALIMUMAB
     Indication: HIDRADENITIS
     Route: 058
     Dates: start: 202006, end: 202103

REACTIONS (18)
  - Sinus congestion [Unknown]
  - Sinusitis [Recovered/Resolved]
  - Ear discomfort [Recovered/Resolved]
  - Ear discomfort [Recovered/Resolved]
  - Ear pain [Recovered/Resolved]
  - Sinusitis [Recovered/Resolved]
  - White blood cell count increased [Unknown]
  - Ear tube insertion [Unknown]
  - Ear tube insertion [Unknown]
  - Paranasal sinus discomfort [Recovered/Resolved]
  - Sinus pain [Recovered/Resolved]
  - Middle ear effusion [Recovered/Resolved]
  - Middle ear effusion [Recovered/Resolved]
  - Hypoacusis [Recovered/Resolved]
  - Hypoacusis [Recovered/Resolved]
  - Sinus pain [Recovered/Resolved]
  - Ear pain [Recovered/Resolved]
  - Paranasal sinus discomfort [Recovered/Resolved]

NARRATIVE: CASE EVENT DATE: 2020
